FAERS Safety Report 9384753 (Version 2)
Quarter: 2013Q3

REPORT INFORMATION
  Report Type: Spontaneous
  Country: GB (occurrence: GB)
  Receive Date: 20130705
  Receipt Date: 20130809
  Transmission Date: 20140515
  Serious: Yes (Hospitalization, Other)
  Sender: FDA-Public Use
  Company Number: GB-PFIZER INC-2013195191

PATIENT
  Age: 34 Year
  Sex: Female

DRUGS (4)
  1. IRINOTECAN HCL [Suspect]
     Indication: COLORECTAL CANCER
     Dosage: UNK
     Route: 042
     Dates: start: 20130430
  2. FLUOROURACIL [Suspect]
     Indication: COLORECTAL CANCER
     Dosage: UNK
     Route: 042
     Dates: start: 20130430
  3. AFLIBERCEPT [Suspect]
     Indication: COLORECTAL CANCER
     Dosage: 275 MG, UNK
     Route: 042
     Dates: start: 20130514
  4. FOLINIC ACID [Suspect]
     Dosage: UNK
     Route: 065
     Dates: start: 20130514

REACTIONS (2)
  - Sepsis [Recovered/Resolved]
  - Mucosal inflammation [Recovered/Resolved]
